FAERS Safety Report 21113718 (Version 2)
Quarter: 2023Q2

REPORT INFORMATION
  Report Type: Report from Study
  Country: US (occurrence: US)
  Receive Date: 20220721
  Receipt Date: 20230630
  Transmission Date: 20230722
  Serious: Yes (Other)
  Sender: FDA-Public Use
  Company Number: US-JAZZ-202203USGW01274

PATIENT
  Age: 0 Year
  Sex: Female

DRUGS (1)
  1. EPIDIOLEX [Suspect]
     Active Substance: CANNABIDIOL
     Indication: Product used for unknown indication
     Dosage: 0.75 MILLILITER, BID
     Route: 048

REACTIONS (4)
  - Product supply issue [Unknown]
  - Product administration interrupted [Unknown]
  - Product administered to patient of inappropriate age [Unknown]
  - Product container issue [Unknown]

NARRATIVE: CASE EVENT DATE: 20220523
